FAERS Safety Report 10422938 (Version 1)
Quarter: 2014Q3

REPORT INFORMATION
  Report Type: Spontaneous
  Country: US (occurrence: None)
  Receive Date: 20140709
  Receipt Date: 20140709
  Transmission Date: 20150326
  Serious: Yes (Other)
  Sender: FDA-Public Use
  Company Number: PHEH2013US020342

PATIENT
  Age: 48 Year
  Sex: Male

DRUGS (5)
  1. GLEEVEC [Suspect]
     Active Substance: IMATINIB MESYLATE
     Dates: start: 2007
  2. ATENOLOL (ATENOLOL) [Concomitant]
     Active Substance: ATENOLOL
  3. ALLOPURINOL. [Concomitant]
     Active Substance: ALLOPURINOL
  4. LISINOPRIL (LISINOPRIL) [Concomitant]
     Active Substance: LISINOPRIL
  5. GEMFIBROZIL (GEMFIBROZIL) [Concomitant]
     Active Substance: GEMFIBROZIL

REACTIONS (1)
  - Drug ineffective [None]
